FAERS Safety Report 8591082-4 (Version None)
Quarter: 2012Q3

REPORT INFORMATION
  Report Type: 
  Country: None (occurrence: None)
  Receive Date: 20120813
  Receipt Date: 20120803
  Transmission Date: 20120928
  Serious: Yes (Other)
  Sender: FDA-Public Use
  Company Number: NL-BAXTER-2012BAX013715

PATIENT
  Sex: Male

DRUGS (2)
  1. ADVATE [Suspect]
     Route: 042
     Dates: start: 20100101
  2. ADVATE [Suspect]
     Route: 042
     Dates: start: 20100101

REACTIONS (6)
  - DEVICE RELATED INFECTION [None]
  - PYREXIA [None]
  - MALAISE [None]
  - VOMITING [None]
  - NECK PAIN [None]
  - NAUSEA [None]
